FAERS Safety Report 8875625 (Version 1)
Quarter: 2012Q4

REPORT INFORMATION
  Report Type: 
  Country: JP (occurrence: JP)
  Receive Date: 20121030
  Receipt Date: 20121030
  Transmission Date: 20130627
  Serious: Yes (Other)
  Sender: FDA-Public Use
  Company Number: JP-ASTELLAS-2012JP010102

PATIENT
  Sex: Male

DRUGS (4)
  1. PROGRAF [Suspect]
     Indication: LUPUS NEPHRITIS
     Dosage: 3 mg, Unknown/D
     Route: 048
  2. PROGRAF [Suspect]
     Dosage: 4 mg, Unknown/D
     Route: 048
  3. LIPITOR [Suspect]
     Route: 048
  4. BAKTAR [Suspect]
     Route: 048

REACTIONS (2)
  - Intentional overdose [Unknown]
  - Liver disorder [Unknown]
